FAERS Safety Report 6579069-4 (Version None)
Quarter: 2010Q1

REPORT INFORMATION
  Report Type: 
  Country: None (occurrence: None)
  Receive Date: 20100212
  Receipt Date: 20100211
  Transmission Date: 20100710
  Serious: Yes (Death, Other)
  Sender: FDA-Public Use
  Company Number: PHEH2008US05616

PATIENT
  Sex: Female

DRUGS (33)
  1. ESTRADERM [Suspect]
     Indication: HORMONE REPLACEMENT THERAPY
     Dosage: UNK
     Dates: start: 19850101, end: 20030101
  2. ESTRACE ^MEAD JOHNSON^ [Suspect]
     Indication: HORMONE REPLACEMENT THERAPY
     Dosage: UNK
     Dates: start: 19850101, end: 20030101
  3. ROXICET [Concomitant]
  4. PROMETHAZINE [Concomitant]
  5. MORPHINE [Concomitant]
  6. ROBINUL FORTE [Concomitant]
  7. CIPROFLOXACIN [Concomitant]
  8. ALPRAZOLAM [Concomitant]
  9. ENALAPRIL MALEATE [Concomitant]
  10. NAPROXEN SODIUM [Concomitant]
  11. TEMAZEPAM [Concomitant]
  12. IBUPROFEN [Concomitant]
  13. AMBIEN [Concomitant]
  14. METRONIDAZOL ^ALPHARMA^ [Concomitant]
  15. NITROFURANTOIN [Concomitant]
  16. DEXAMETHASONE [Concomitant]
  17. FLUCONAZOLE [Concomitant]
  18. METROGEL [Concomitant]
  19. ZITHROMAX [Concomitant]
  20. SERTRALINE HCL [Concomitant]
  21. METHYLPREDNISOLON ^JENAPHARM^ [Concomitant]
  22. CYCLOBENZAPRINE [Concomitant]
  23. TAMOXIFEN CITRATE [Concomitant]
  24. BIAXIN [Concomitant]
  25. PREMARIN [Concomitant]
  26. CEPHALEXIN [Concomitant]
  27. CLEOCIN [Concomitant]
  28. MONOPRIL [Concomitant]
  29. CEFADROXIL [Concomitant]
  30. MIRALAX [Concomitant]
  31. DICYCLOMINE [Concomitant]
  32. ADIPEX [Concomitant]
  33. CHEMOTHERAPEUTICS NOS [Concomitant]

REACTIONS (37)
  - ABSCESS [None]
  - ANAEMIA [None]
  - ANXIETY [None]
  - ASTHMA [None]
  - BONE PAIN [None]
  - CHILLS [None]
  - CHOLELITHIASIS [None]
  - CHRONIC OBSTRUCTIVE PULMONARY DISEASE [None]
  - COLECTOMY [None]
  - COLOSTOMY [None]
  - DEATH [None]
  - DEPRESSION [None]
  - DIARRHOEA [None]
  - EXPLORATIVE LAPAROTOMY [None]
  - FATIGUE [None]
  - FISTULA [None]
  - FUNGAL SEPSIS [None]
  - HYPERGLYCAEMIA [None]
  - HYPERTENSION [None]
  - HYPOKALAEMIA [None]
  - ILEOSTOMY CLOSURE [None]
  - INTESTINAL HAEMORRHAGE [None]
  - LEFT VENTRICULAR HYPERTROPHY [None]
  - MALNUTRITION [None]
  - MENTAL STATUS CHANGES [None]
  - NAUSEA [None]
  - NEUTROPENIA [None]
  - OOPHORECTOMY [None]
  - OVARIAN CANCER [None]
  - PAIN [None]
  - PANCYTOPENIA [None]
  - PLEURAL EFFUSION [None]
  - POSTOPERATIVE WOUND INFECTION [None]
  - PYREXIA [None]
  - SCAR [None]
  - SHORT-BOWEL SYNDROME [None]
  - URINARY TRACT INFECTION [None]
